FAERS Safety Report 23572662 (Version 1)
Quarter: 2024Q1

REPORT INFORMATION
  Report Type: Spontaneous
  Country: US (occurrence: US)
  Receive Date: 20240227
  Receipt Date: 20240227
  Transmission Date: 20240410
  Serious: No
  Sender: FDA-Public Use
  Company Number: US-AVADEL CNS PHARMACEUTICALS, LLC-2023AVA00565

PATIENT
  Sex: Female

DRUGS (6)
  1. LUMRYZ [Suspect]
     Active Substance: SODIUM OXYBATE
     Indication: Narcolepsy
     Dosage: 4.5 MG, ONCE NIGHTLY
     Dates: start: 20231115, end: 20240115
  2. LUMRYZ [Suspect]
     Active Substance: SODIUM OXYBATE
     Indication: Fatigue
  3. FLUVOXAMINE [Concomitant]
     Active Substance: FLUVOXAMINE
  4. AJOVY [Concomitant]
     Active Substance: FREMANEZUMAB-VFRM
     Dosage: ONCE A MONTH
  5. OMEGA-3 FATTY ACIDS [Concomitant]
     Active Substance: OMEGA-3 FATTY ACIDS
  6. HERBALS\TURMERIC [Concomitant]
     Active Substance: HERBALS\TURMERIC

REACTIONS (4)
  - Feeding disorder [Recovering/Resolving]
  - Retching [Recovering/Resolving]
  - Gastrointestinal disorder [Recovering/Resolving]
  - Nausea [Not Recovered/Not Resolved]
